FAERS Safety Report 12490401 (Version 3)
Quarter: 2016Q3

REPORT INFORMATION
  Report Type: Report from Study
  Country: CN (occurrence: CN)
  Receive Date: 20160622
  Receipt Date: 20160706
  Transmission Date: 20161109
  Serious: Yes (Hospitalization)
  Sender: FDA-Public Use
  Company Number: CN-ASTRAZENECA-2016SE57648

PATIENT
  Age: 54 Year
  Sex: Female

DRUGS (6)
  1. BYETTA [Suspect]
     Active Substance: EXENATIDE
     Indication: BLOOD GLUCOSE INCREASED
     Route: 058
     Dates: start: 20160518, end: 201605
  2. DIABETES DRUGS [Concomitant]
     Active Substance: UNSPECIFIED INGREDIENT
     Dosage: DAILY
  3. BYETTA [Suspect]
     Active Substance: EXENATIDE
     Indication: DIABETES MELLITUS
     Route: 058
     Dates: start: 20160518, end: 201605
  4. ANTIHYPERTENSIVE DRUGS [Concomitant]
     Active Substance: UNSPECIFIED INGREDIENT
     Dosage: DAILY
  5. BYETTA [Suspect]
     Active Substance: EXENATIDE
     Indication: DIABETES MELLITUS
     Route: 058
     Dates: start: 20160418, end: 20160517
  6. BYETTA [Suspect]
     Active Substance: EXENATIDE
     Indication: BLOOD GLUCOSE INCREASED
     Route: 058
     Dates: start: 20160418, end: 20160517

REACTIONS (7)
  - Hypoacusis [Unknown]
  - Vomiting [Unknown]
  - Blood pressure increased [Not Recovered/Not Resolved]
  - Syncope [Unknown]
  - Blood glucose decreased [Recovered/Resolved]
  - Dizziness [Unknown]
  - Asthenia [Unknown]

NARRATIVE: CASE EVENT DATE: 201605
